FAERS Safety Report 18603818 (Version 1)
Quarter: 2020Q4

REPORT INFORMATION
  Report Type: Spontaneous
  Country: US (occurrence: US)
  Receive Date: 20201210
  Receipt Date: 20201210
  Transmission Date: 20210114
  Serious: Yes (Hospitalization)
  Sender: FDA-Public Use
  Company Number: None

PATIENT
  Age: 48 Year
  Sex: Female

DRUGS (7)
  1. CAPECITABINE. [Suspect]
     Active Substance: CAPECITABINE
     Indication: GASTRIC CANCER
     Route: 048
     Dates: start: 20200402
  2. LINZESS 145 MCG [Concomitant]
  3. MIRALAX [Concomitant]
     Active Substance: POLYETHYLENE GLYCOL 3350
  4. HYDROMORPHONE [Concomitant]
     Active Substance: HYDROMORPHONE
  5. METHADONE [Concomitant]
     Active Substance: METHADONE HYDROCHLORIDE
  6. LORAZEPAM 1 MG [Concomitant]
     Active Substance: LORAZEPAM
  7. OMEPRAZOLE 40MG [Concomitant]
     Active Substance: OMEPRAZOLE

REACTIONS (2)
  - Metastases to gastrointestinal tract [None]
  - Arthralgia [None]

NARRATIVE: CASE EVENT DATE: 20201130
